FAERS Safety Report 5950365-4 (Version None)
Quarter: 2008Q4

REPORT INFORMATION
  Report Type: 
  Country: None (occurrence: None)
  Receive Date: 20081112
  Receipt Date: 20081105
  Transmission Date: 20090506
  Serious: Yes (Other)
  Sender: FDA-Public Use
  Company Number: PHEH2008US09795

PATIENT
  Sex: Female

DRUGS (4)
  1. TRILEPTAL [Suspect]
     Indication: CONVULSION
     Dosage: 600 MG, 1 TAB QAM, 2 TABS QPM
     Route: 048
     Dates: start: 20040101
  2. KEPPRA [Concomitant]
  3. SYNTHROID [Concomitant]
  4. METFORMIN HCL [Concomitant]

REACTIONS (1)
  - TONSILLECTOMY [None]
